FAERS Safety Report 4625688-1 (Version None)
Quarter: 2005Q2

REPORT INFORMATION
  Report Type: 
  Country: None (occurrence: None)
  Receive Date: 20050404
  Receipt Date: 20050322
  Transmission Date: 20051028
  Serious: Yes (Other)
  Sender: FDA-Public Use
  Company Number: JP-JNJFOC-20041005203

PATIENT
  Sex: Male
  Weight: 52.35 kg

DRUGS (21)
  1. REMICADE [Suspect]
     Route: 042
  2. REMICADE [Suspect]
     Route: 042
  3. REMICADE [Suspect]
     Route: 042
  4. REMICADE [Suspect]
     Route: 042
  5. REMICADE [Suspect]
     Indication: RHEUMATOID ARTHRITIS
     Route: 042
  6. RHEUMATREX [Suspect]
     Route: 049
  7. RHEUMATREX [Suspect]
     Route: 049
  8. RHEUMATREX [Suspect]
     Indication: RHEUMATOID ARTHRITIS
     Route: 049
  9. PREDONINE [Suspect]
     Route: 049
  10. PREDONINE [Suspect]
     Indication: RHEUMATOID ARTHRITIS
     Route: 049
  11. VOLTAREN [Concomitant]
     Route: 049
  12. FOLIAMIN [Concomitant]
     Route: 049
  13. CYTOTEC [Concomitant]
     Route: 049
  14. GRIMAC [Concomitant]
     Route: 049
  15. GRIMAC [Concomitant]
     Route: 049
  16. DEPAS [Concomitant]
     Route: 049
  17. ALFAROL [Concomitant]
     Route: 049
  18. BONALON [Concomitant]
     Route: 049
  19. FASTIC [Concomitant]
     Route: 049
  20. FERROMIA [Concomitant]
     Route: 049
  21. AZULENE SULFONATE SODIUM [Concomitant]
     Route: 049

REACTIONS (2)
  - BRONCHITIS [None]
  - PULMONARY MYCOSIS [None]
